FAERS Safety Report 10160191 (Version 1)
Quarter: 2014Q2

REPORT INFORMATION
  Report Type: Spontaneous
  Country: FR (occurrence: FR)
  Receive Date: 20140508
  Receipt Date: 20140508
  Transmission Date: 20141212
  Serious: Yes (Hospitalization, Other)
  Sender: FDA-Public Use
  Company Number: FR-ASTRAZENECA-2014SE29392

PATIENT
  Age: 12576 Day
  Sex: Female

DRUGS (4)
  1. DIPRIVAN [Suspect]
     Indication: INDUCTION OF ANAESTHESIA
     Route: 042
     Dates: start: 20140403, end: 20140403
  2. SUXAMETHONIUM BIOCODEX [Suspect]
     Indication: INDUCTION OF ANAESTHESIA
     Route: 042
     Dates: start: 20140403, end: 20140403
  3. RAPIFEN [Suspect]
     Indication: INDUCTION OF ANAESTHESIA
     Route: 042
     Dates: start: 20140403, end: 20140403
  4. INEXIUM [Concomitant]

REACTIONS (3)
  - Shock [Recovered/Resolved]
  - Rash [Unknown]
  - Drug ineffective [None]
